FAERS Safety Report 8386213-5 (Version None)
Quarter: 2012Q2

REPORT INFORMATION
  Report Type: 
  Country: None (occurrence: None)
  Receive Date: 20120525
  Receipt Date: 20120522
  Transmission Date: 20120825
  Serious: Yes (Death)
  Sender: FDA-Public Use
  Company Number: BR-PFIZER INC-2012040808

PATIENT
  Age: 76 Year
  Sex: Male
  Weight: 62 kg

DRUGS (1)
  1. SUTENT [Suspect]
     Indication: RENAL CANCER
     Dosage: 50 MG, CYCLIC, 1X/DAY, ALTERNATE DAY
     Route: 048
     Dates: start: 20110402

REACTIONS (9)
  - DEATH [None]
  - EATING DISORDER [None]
  - HYPOTHYROIDISM [None]
  - AGEUSIA [None]
  - DIARRHOEA [None]
  - FATIGUE [None]
  - WEIGHT DECREASED [None]
  - ORAL PAIN [None]
  - FEELING COLD [None]
